FAERS Safety Report 9849353 (Version 3)
Quarter: 2014Q2

REPORT INFORMATION
  Report Type: Report from Study
  Country: IE (occurrence: IE)
  Receive Date: 20140128
  Receipt Date: 20140527
  Transmission Date: 20141212
  Serious: Yes (Hospitalization)
  Sender: FDA-Public Use
  Company Number: IE-NOVOPROD-398195

PATIENT
  Age: 56 Year
  Sex: Male
  Weight: 93 kg

DRUGS (8)
  1. LIRAGLUTIDE FLEXPEN [Suspect]
     Indication: TYPE 2 DIABETES MELLITUS
     Dosage: UNK
     Route: 058
     Dates: start: 20140110, end: 20140117
  2. LIRAGLUTIDE FLEXPEN [Suspect]
     Dosage: 0.6 MG, QD
     Route: 058
     Dates: start: 20140118
  3. ASPIRIN [Concomitant]
     Dosage: 75 MG, QD
     Route: 065
  4. DAONIL [Concomitant]
     Dosage: 5 MG, QD
     Route: 065
  5. LIPITOR [Concomitant]
     Dosage: 40 MG, QD
     Route: 065
  6. METOPROLOL [Concomitant]
     Dosage: 12.5 MG, BID
     Route: 065
  7. GLUCOPHAGE [Concomitant]
     Dosage: 1 G, BID
     Route: 065
     Dates: start: 20140110
  8. DIAMICRON [Concomitant]
     Dosage: UNK (120 MG)
     Route: 065

REACTIONS (6)
  - Asthenia [Recovered/Resolved]
  - Feeling abnormal [Recovered/Resolved]
  - Nausea [Recovered/Resolved]
  - Arteriosclerosis coronary artery [Recovered/Resolved]
  - Chest pain [Recovered/Resolved]
  - Depression [Recovering/Resolving]
